FAERS Safety Report 10240549 (Version 1)
Quarter: 2014Q2

REPORT INFORMATION
  Report Type: Spontaneous
  Country: US (occurrence: US)
  Receive Date: 20140617
  Receipt Date: 20140617
  Transmission Date: 20141212
  Serious: No
  Sender: FDA-Public Use
  Company Number: US-009507513-1406USA002765

PATIENT
  Age: 64 Year
  Sex: Male

DRUGS (3)
  1. PEGINTRON [Suspect]
     Indication: HEPATITIS C
     Dosage: UNK
     Dates: start: 2009, end: 2009
  2. PEGINTRON [Suspect]
     Dosage: 120 MICROGRAM 1 STANDARD DOSE OF 1
     Dates: start: 20140603
  3. REBETOL [Suspect]
     Indication: HEPATITIS C
     Dosage: UNK
     Route: 048
     Dates: start: 2009, end: 2009

REACTIONS (3)
  - Hepatitis C [Not Recovered/Not Resolved]
  - Fatigue [Recovered/Resolved]
  - Product container issue [Unknown]
